FAERS Safety Report 9420134 (Version 1)
Quarter: 2013Q3

REPORT INFORMATION
  Report Type: Spontaneous
  Country: US (occurrence: US)
  Receive Date: 20130725
  Receipt Date: 20130725
  Transmission Date: 20140515
  Serious: No
  Sender: FDA-Public Use
  Company Number: US-TEVA-419942USA

PATIENT
  Age: 29 Year
  Sex: Female
  Weight: 136.65 kg

DRUGS (5)
  1. PARAGARD 380A [Suspect]
     Indication: CONTRACEPTION
  2. SYNTHROID [Concomitant]
     Route: 048
  3. PROZAC [Concomitant]
     Indication: ANXIETY
  4. ABILIFY [Concomitant]
     Indication: DEPRESSION
  5. LAMICTAL [Concomitant]

REACTIONS (1)
  - Device expulsion [Recovered/Resolved]
